FAERS Safety Report 9927988 (Version 2)
Quarter: 2014Q2

REPORT INFORMATION
  Report Type: Spontaneous
  Country: US (occurrence: US)
  Receive Date: 20140227
  Receipt Date: 20140402
  Transmission Date: 20141212
  Serious: No
  Sender: FDA-Public Use
  Company Number: US-PFIZER INC-2014056197

PATIENT
  Age: 79 Year
  Sex: Female

DRUGS (4)
  1. NEURONTIN [Suspect]
     Dosage: UNK
  2. GLIPIZIDE [Concomitant]
     Dosage: 5 MG, DAILY
     Dates: start: 201211
  3. LISINOPRIL W/HYDROCHLOROTHIAZIDE [Concomitant]
     Dosage: 20 / 12.5 MG DAILY
     Dates: start: 201211
  4. METFORMIN [Concomitant]
     Dosage: 500 MG, DAILY
     Dates: start: 201211

REACTIONS (3)
  - Drug hypersensitivity [Unknown]
  - Nausea [Recovered/Resolved]
  - Decreased appetite [Recovered/Resolved]
